FAERS Safety Report 4914406-5 (Version None)
Quarter: 2006Q1

REPORT INFORMATION
  Report Type: 
  Country: None (occurrence: None)
  Receive Date: 20060213
  Receipt Date: 20060131
  Transmission Date: 20060701
  Serious: Yes (Hospitalization)
  Sender: FDA-Public Use
  Company Number: 2005BI018551

PATIENT
  Age: 37 Year
  Sex: Female
  Weight: 56.246 kg

DRUGS (4)
  1. AVONEX [Suspect]
     Indication: MULTIPLE SCLEROSIS
     Dosage: 30 UG; QW; IM
     Route: 030
     Dates: start: 19980101, end: 20040101
  2. AVONEX [Suspect]
     Indication: MULTIPLE SCLEROSIS
     Dosage: 30 UG; QW; IM
     Route: 030
     Dates: start: 20040101
  3. NEURONTIN [Concomitant]
  4. MUSCLE RELAXER NOS [Concomitant]

REACTIONS (8)
  - ABDOMINAL PAIN UPPER [None]
  - BALANCE DISORDER [None]
  - CLUMSINESS [None]
  - CONDITION AGGRAVATED [None]
  - HEADACHE [None]
  - INFLUENZA LIKE ILLNESS [None]
  - MULTIPLE SCLEROSIS [None]
  - OPTIC NEURITIS [None]
